FAERS Safety Report 4486149-6 (Version None)
Quarter: 2004Q4

REPORT INFORMATION
  Report Type: 
  Country: None (occurrence: None)
  Receive Date: 20041021
  Receipt Date: 20041007
  Transmission Date: 20050328
  Serious: Yes (Hospitalization)
  Sender: FDA-Public Use
  Company Number: 04/02/03765

PATIENT
  Sex: Female
  Weight: 58 kg

DRUGS (16)
  1. CETUXIMAB [Suspect]
     Indication: COLORECTAL CANCER METASTATIC
     Dosage: 400 MG/M2 X 1 THEN 250 MG/M2/WEEK IV
     Route: 042
     Dates: start: 20040810, end: 20040907
  2. IRINOTECAN HCL [Suspect]
     Dosage: 230 MG/M2
     Dates: start: 20040810, end: 20040907
  3. ACYCLOVIR [Concomitant]
  4. FILGRASTIM [Concomitant]
  5. METHIONINE [Concomitant]
  6. GRANISETRON [Concomitant]
  7. KREON (PANCREATIN) [Concomitant]
  8. LOPERAMID [Concomitant]
  9. GABAPENTIN [Concomitant]
  10. SACCHAROMYCES BOULARDII FORTE [Concomitant]
  11. PANTOPRAZOLE [Concomitant]
  12. METAMIZOLE [Concomitant]
  13. FENTANYL [Concomitant]
  14. AMINOMIX (ISOLEUCINE) [Concomitant]
  15. INSULIN [Concomitant]
  16. INTRALIPID 10% [Concomitant]

REACTIONS (6)
  - COLORECTAL CANCER METASTATIC [None]
  - DISEASE PROGRESSION [None]
  - GENERAL PHYSICAL HEALTH DETERIORATION [None]
  - HERPES ZOSTER [None]
  - NEUTROPENIA [None]
  - RENAL FAILURE [None]
